FAERS Safety Report 7060439-5 (Version None)
Quarter: 2010Q4

REPORT INFORMATION
  Report Type: 
  Country: None (occurrence: None)
  Receive Date: 20101025
  Receipt Date: 20101012
  Transmission Date: 20110411
  Serious: Yes (Other)
  Sender: FDA-Public Use
  Company Number: BE-NOVOPROD-316164

PATIENT
  Age: 53 Year
  Sex: Male
  Weight: 82 kg

DRUGS (6)
  1. VICTOZA [Suspect]
     Indication: PRODUCT USED FOR UNKNOWN INDICATION
     Dosage: 1.2 MG, QD
     Dates: start: 20100921, end: 20100928
  2. VICTOZA [Suspect]
     Dosage: 0.6 MG, QD
     Dates: start: 20100914, end: 20100921
  3. VICTOZA [Suspect]
     Dosage: 0.6 MG, QD
     Dates: start: 20100928, end: 20100930
  4. VICTOZA [Suspect]
     Dosage: 0.6 MG, UNK
     Dates: start: 20101006
  5. GLUCOPHAGE [Concomitant]
     Dosage: 3X/DAY
  6. GLICLAZIDE [Concomitant]
     Dosage: 2X/DAY

REACTIONS (6)
  - ASTHENIA [None]
  - FATIGUE [None]
  - GASTRITIS [None]
  - HYPERHIDROSIS [None]
  - NAUSEA [None]
  - VOMITING [None]
